FAERS Safety Report 4811013-X (Version None)
Quarter: 2005Q4

REPORT INFORMATION
  Report Type: 
  Country: None (occurrence: None)
  Receive Date: 20051027
  Receipt Date: 20051018
  Transmission Date: 20060501
  Serious: Yes (Hospitalization)
  Sender: FDA-Public Use
  Company Number: SE-JNJFOC-20051004056

PATIENT
  Age: 84 Year
  Sex: Male

DRUGS (1)
  1. REMINYL [Suspect]
     Indication: DEMENTIA
     Route: 048

REACTIONS (3)
  - FATIGUE [None]
  - POLYMYALGIA RHEUMATICA [None]
  - RENAL FAILURE ACUTE [None]
